FAERS Safety Report 5245956-2 (Version None)
Quarter: 2007Q1

REPORT INFORMATION
  Report Type: 
  Country: None (occurrence: None)
  Receive Date: 20070220
  Receipt Date: 20070210
  Transmission Date: 20070707
  Serious: Yes (Death)
  Sender: FDA-Public Use
  Company Number: 152843ISR

PATIENT
  Age: 18 Year
  Sex: Male

DRUGS (3)
  1. PREDNISOLONE [Suspect]
     Indication: ACUTE LYMPHOCYTIC LEUKAEMIA
     Dosage: 5.7143-MG/M2 (40 MG/M2 1 IN 1 WK) ORAL
     Route: 048
     Dates: start: 20061101, end: 20061201
  2. METHOTREXATE [Suspect]
     Dosage: INTRATHECAL
     Route: 037
     Dates: start: 20061101, end: 20061201
  3. VINCRISTINE [Suspect]
     Dosage: INTRAVENOUS (NOT OTHERWISE SPECIFIED)
     Route: 042

REACTIONS (2)
  - CARDIAC ARREST [None]
  - NEUTROPENIC SEPSIS [None]
